FAERS Safety Report 18792578 (Version 1)
Quarter: 2021Q1

REPORT INFORMATION
  Report Type: Spontaneous
  Country: US (occurrence: US)
  Receive Date: 20210127
  Receipt Date: 20210127
  Transmission Date: 20210419
  Serious: No
  Sender: FDA-Public Use
  Company Number: US-JNJFOC-20210131441

PATIENT
  Age: 23 Year
  Sex: Female
  Weight: 56.3 kg

DRUGS (1)
  1. INVEGA [Suspect]
     Active Substance: PALIPERIDONE
     Indication: PRODUCT USED FOR UNKNOWN INDICATION
     Route: 048

REACTIONS (6)
  - Hyperkinesia [Recovering/Resolving]
  - Muscular weakness [Recovering/Resolving]
  - Female sexual arousal disorder [Not Recovered/Not Resolved]
  - Salivary hypersecretion [Recovering/Resolving]
  - Gait disturbance [Recovering/Resolving]
  - Amenorrhoea [Not Recovered/Not Resolved]

NARRATIVE: CASE EVENT DATE: 202009
